FAERS Safety Report 6937291-9 (Version None)
Quarter: 2010Q3

REPORT INFORMATION
  Report Type: 
  Country: None (occurrence: None)
  Receive Date: 20100823
  Receipt Date: 20100810
  Transmission Date: 20110219
  Serious: Yes (Death)
  Sender: FDA-Public Use
  Company Number: B0669565A

PATIENT
  Sex: Female

DRUGS (5)
  1. LEUKERAN [Suspect]
     Dosage: 6MG PER DAY
     Route: 048
     Dates: start: 20040728
  2. PREDNISOLONE [Suspect]
     Dosage: 40MG PER DAY
     Route: 048
     Dates: start: 20100303, end: 20100306
  3. THYROXIN [Concomitant]
     Indication: HYPOTHYROIDISM
     Dosage: .025MG THREE TIMES PER DAY
     Route: 048
     Dates: start: 20090116
  4. OMEPRAZOLE [Concomitant]
     Indication: PROPHYLAXIS
     Route: 048
     Dates: start: 20100104
  5. VALTREX [Concomitant]
     Indication: HERPES VIRUS INFECTION
     Dosage: 500MG TWICE PER DAY
     Route: 048
     Dates: start: 20100104

REACTIONS (10)
  - BASAL CELL CARCINOMA [None]
  - BRONCHITIS [None]
  - ENURESIS [None]
  - GOITRE [None]
  - HYPOGAMMAGLOBULINAEMIA [None]
  - HYPOTHYROIDISM [None]
  - JC VIRUS INFECTION [None]
  - PNEUMONIA [None]
  - PROGRESSIVE MULTIFOCAL LEUKOENCEPHALOPATHY [None]
  - THYROIDECTOMY [None]
